FAERS Safety Report 5661945-8 (Version None)
Quarter: 2008Q1

REPORT INFORMATION
  Report Type: 
  Country: None (occurrence: None)
  Receive Date: 20080310
  Receipt Date: 20080310
  Transmission Date: 20080703
  Serious: Yes (Other)
  Sender: FDA-Public Use
  Company Number: None

PATIENT
  Age: 50 Year
  Sex: Female
  Weight: 51.2565 kg

DRUGS (2)
  1. ACTONEL [Suspect]
     Indication: OSTEOPOROSIS
     Dosage: 75 MG PO
     Route: 048
     Dates: start: 20071210, end: 20080110
  2. BONIVA [Suspect]
     Indication: OSTEOPOROSIS
     Dosage: 150 MG PO
     Route: 048
     Dates: start: 20080110, end: 20080210

REACTIONS (6)
  - DIZZINESS [None]
  - HEADACHE [None]
  - INFLUENZA [None]
  - MUSCULOSKELETAL STIFFNESS [None]
  - MYALGIA [None]
  - PYREXIA [None]
